FAERS Safety Report 9221082 (Version 2)
Quarter: 2013Q3

REPORT INFORMATION
  Report Type: Report from Study
  Country: US (occurrence: US)
  Receive Date: 20130409
  Receipt Date: 20130904
  Transmission Date: 20140515
  Serious: Yes (Life-Threatening, Hospitalization)
  Sender: FDA-Public Use
  Company Number: US-US-EMD SERONO, INC.-7203336

PATIENT
  Sex: Female
  Weight: 62 kg

DRUGS (3)
  1. REBIF [Suspect]
     Indication: MULTIPLE SCLEROSIS
     Route: 058
     Dates: start: 20051228, end: 2006
  2. REBIF [Suspect]
     Route: 058
     Dates: start: 20120613, end: 20130211
  3. GABAPENTIN [Concomitant]
     Indication: NEURALGIA

REACTIONS (7)
  - Coma [Recovered/Resolved]
  - Renal impairment [Recovered/Resolved]
  - Pneumothorax [Unknown]
  - Myocardial infarction [Recovered/Resolved]
  - Thrombosis [Recovering/Resolving]
  - Nerve injury [Unknown]
  - Mobility decreased [Unknown]
